FAERS Safety Report 5391391-6 (Version None)
Quarter: 2007Q3

REPORT INFORMATION
  Report Type: 
  Country: None (occurrence: None)
  Receive Date: 20070719
  Receipt Date: 20070504
  Transmission Date: 20080115
  Serious: Yes (Other)
  Sender: FDA-Public Use
  Company Number: AU-BRISTOL-MYERS SQUIBB COMPANY-13850573

PATIENT
  Age: 57 Year
  Sex: Male

DRUGS (7)
  1. METFORMIN HCL [Suspect]
  2. NOVOMIX [Concomitant]
  3. SOLPRIN [Concomitant]
     Route: 048
  4. LIPITOR [Concomitant]
     Route: 048
  5. LERCANIDIPINE [Concomitant]
  6. PERGOLIDE MESYLATE [Concomitant]
  7. COVERSYL PLUS [Concomitant]
     Route: 048

REACTIONS (1)
  - MOBILITY DECREASED [None]
